FAERS Safety Report 16881318 (Version 1)
Quarter: 2019Q4

REPORT INFORMATION
  Report Type: Spontaneous
  Country: US (occurrence: US)
  Receive Date: 20190807
  Receipt Date: 20190807
  Transmission Date: 20200122
  Serious: Yes (Death, Life-Threatening, Hospitalization, Other)
  Sender: FDA-Public Use
  Company Number: None

PATIENT
  Age: 90 Year
  Sex: Male
  Weight: 61.23 kg

DRUGS (4)
  1. RISONDRONATE SODIUM 150MG TAB [Suspect]
     Active Substance: RISEDRONATE SODIUM
     Indication: BONE LOSS
     Dosage: ?          QUANTITY:1 DF DOSAGE FORM;OTHER FREQUENCY:FIRST TIME;?
     Route: 048
     Dates: start: 20180602, end: 20180602
  2. SERTRALIN [Concomitant]
     Active Substance: SERTRALINE HYDROCHLORIDE
  3. PREDNISONE 10MG [Concomitant]
     Active Substance: PREDNISONE
  4. CANDESARTAN. [Concomitant]
     Active Substance: CANDESARTAN

REACTIONS (2)
  - Ischaemic stroke [None]
  - Influenza like illness [None]

NARRATIVE: CASE EVENT DATE: 20180606
